FAERS Safety Report 22364923 (Version 1)
Quarter: 2023Q2

REPORT INFORMATION
  Report Type: Spontaneous
  Country: US (occurrence: US)
  Receive Date: 20230525
  Receipt Date: 20230525
  Transmission Date: 20230721
  Serious: No
  Sender: FDA-Public Use
  Company Number: US-ELI_LILLY_AND_COMPANY-US202305013616

PATIENT
  Sex: Male

DRUGS (3)
  1. REYVOW [Suspect]
     Active Substance: LASMIDITAN
     Indication: Cluster headache
     Dosage: 100 MG, UNKNOWN
     Route: 065
     Dates: start: 20221101
  2. REYVOW [Suspect]
     Active Substance: LASMIDITAN
     Dosage: 100 MG, UNKNOWN
     Route: 065
  3. VERAPAMIL [Concomitant]
     Active Substance: VERAPAMIL HYDROCHLORIDE
     Indication: Headache

REACTIONS (2)
  - Memory impairment [Unknown]
  - Off label use [Unknown]
